FAERS Safety Report 8617906 (Version 2)
Quarter: 2012Q4

REPORT INFORMATION
  Report Type: Report from Study
  Country: CA (occurrence: CA)
  Receive Date: 20120615
  Receipt Date: 20121207
  Transmission Date: 20130627
  Serious: No
  Sender: FDA-Public Use
  Company Number: CA-ABBOTT-12P-028-0943913-00

PATIENT
  Age: 33 Year
  Sex: Female
  Weight: 98.97 kg

DRUGS (6)
  1. HUMIRA [Suspect]
     Indication: CROHN^S DISEASE
     Route: 058
     Dates: start: 20091020, end: 20091020
  2. HUMIRA [Suspect]
     Route: 058
  3. HUMIRA [Suspect]
  4. MINERVA [Concomitant]
     Indication: CONTRACEPTION
     Route: 015
     Dates: start: 20070115
  5. ELETRIPTAN HYDROBROMIDE [Concomitant]
     Indication: MIGRAINE
  6. TYLENOL EXTRA STRENGTH [Concomitant]
     Indication: MIGRAINE

REACTIONS (1)
  - Benign intracranial hypertension [Not Recovered/Not Resolved]
